FAERS Safety Report 9097941 (Version 1)
Quarter: 2013Q1

REPORT INFORMATION
  Report Type: Spontaneous
  Country: US (occurrence: US)
  Receive Date: 20130212
  Receipt Date: 20130212
  Transmission Date: 20140127
  Serious: No
  Sender: FDA-Public Use
  Company Number: US-009507513-1302USA003816

PATIENT
  Sex: Female
  Weight: 49.89 kg

DRUGS (1)
  1. IMPLANON [Suspect]
     Indication: CONTRACEPTION
     Dosage: ONE 68 MG ROD UP TO 3 YEARS
     Route: 059
     Dates: start: 20101019

REACTIONS (7)
  - Ovarian cyst [Unknown]
  - Menorrhagia [Unknown]
  - Menorrhagia [Unknown]
  - Irritability [Unknown]
  - Syncope [Unknown]
  - Menorrhagia [Unknown]
  - Head injury [Unknown]
